FAERS Safety Report 4601900-X (Version None)
Quarter: 2005Q2

REPORT INFORMATION
  Report Type: 
  Country: None (occurrence: None)
  Receive Date: 20050215
  Receipt Date: 20050106
  Transmission Date: 20051028
  Serious: Yes (Other)
  Sender: FDA-Public Use
  Company Number: 392008

PATIENT
  Age: 55 Year
  Sex: Male

DRUGS (2)
  1. PEGASYS [Suspect]
     Dosage: SUBCUTANEOUS
     Route: 058
     Dates: start: 20040508
  2. COPEGUS [Suspect]
     Dosage: ORAL
     Route: 048
     Dates: start: 20040508

REACTIONS (12)
  - ANGER [None]
  - ASTHENIA [None]
  - DEPRESSION [None]
  - DIZZINESS [None]
  - FATIGUE [None]
  - HEADACHE [None]
  - HEPATIC PAIN [None]
  - IRRITABILITY [None]
  - NAUSEA [None]
  - PSYCHOTIC DISORDER [None]
  - RASH [None]
  - SUICIDAL IDEATION [None]
